FAERS Safety Report 5754653-6 (Version None)
Quarter: 2008Q2

REPORT INFORMATION
  Report Type: 
  Country: None (occurrence: None)
  Receive Date: 20080530
  Receipt Date: 20080521
  Transmission Date: 20081010
  Serious: Yes (Other)
  Sender: FDA-Public Use
  Company Number: US-PFIZER INC-2008043739

PATIENT
  Sex: Female
  Weight: 86.2 kg

DRUGS (1)
  1. BEXTRA [Suspect]
     Indication: BACK INJURY

REACTIONS (3)
  - BACK DISORDER [None]
  - SCAR [None]
  - SKIN DISORDER [None]
